FAERS Safety Report 8402271-3 (Version None)
Quarter: 2012Q2

REPORT INFORMATION
  Report Type: 
  Country: None (occurrence: None)
  Receive Date: 20120529
  Receipt Date: 20031029
  Transmission Date: 20120825
  Serious: Yes (Death, Life-Threatening)
  Sender: FDA-Public Use
  Company Number: 02100-JPN-03-0224

PATIENT
  Age: 73 Year
  Sex: Male

DRUGS (9)
  1. FORSENID (SENNOSIDE A+B) TABLET [Concomitant]
  2. LASIX [Concomitant]
  3. TICLOPIDINE HYDROCHLORIDE [Suspect]
     Indication: THROMBOSIS PROPHYLAXIS
     Dosage: 100 MG, BID, ORAL
     Route: 048
     Dates: start: 20030825, end: 20031005
  4. MAGLAX (MAGNESIUM OXIDE) TABLET [Concomitant]
  5. PLETAL [Suspect]
     Indication: THROMBOSIS PROPHYLAXIS
     Dosage: 100 MG, BID, ORAL
     Route: 048
     Dates: start: 20030825, end: 20031005
  6. AMOBAN (ZOPICLONE) TABLET [Concomitant]
  7. MUCOSTA (REBAMIPIDE) TABLET [Concomitant]
  8. ALDACTONE [Concomitant]
  9. NITOROL (ISOSORBIDE DINITRATE) CAPSULE [Concomitant]

REACTIONS (5)
  - ACUTE RESPIRATORY DISTRESS SYNDROME [None]
  - PNEUMONIA [None]
  - SEPTIC SHOCK [None]
  - AGRANULOCYTOSIS [None]
  - RESPIRATORY FAILURE [None]
